FAERS Safety Report 17296419 (Version 1)
Quarter: 2020Q1

REPORT INFORMATION
  Report Type: Spontaneous
  Country: FI (occurrence: FI)
  Receive Date: 20200121
  Receipt Date: 20200121
  Transmission Date: 20200409
  Serious: Yes (Hospitalization)
  Sender: FDA-Public Use
  Company Number: FI-MYLANLABS-2020M1004953

PATIENT
  Age: 66 Year
  Sex: Female
  Weight: 104 kg

DRUGS (25)
  1. OXALIPLATIN. [Suspect]
     Active Substance: OXALIPLATIN
     Indication: NEOPLASM MALIGNANT
     Dosage: 260,MG,X1
     Route: 042
     Dates: start: 20191002, end: 20191002
  2. DAKTACORT [Concomitant]
     Active Substance: HYDROCORTISONE\MICONAZOLE NITRATE
     Dosage: 2,DF,DAILY
     Dates: start: 20191002
  3. PANADOL FORTE                      /00020001/ [Concomitant]
     Active Substance: ACETAMINOPHEN
     Dosage: ,,AS NECESSARY
     Dates: start: 20190926
  4. OXYNORM [Concomitant]
     Active Substance: OXYCODONE HYDROCHLORIDE
     Dosage: ,,AS NECESSARY
     Dates: start: 20190926
  5. GRANISETRON STADA [Concomitant]
     Dosage: ,,AS NECESSARY
     Dates: start: 20190926
  6. FUCICORT LIPID [Concomitant]
     Dosage: 2,DF,DAILY
     Dates: start: 20190926
  7. PRIMPERAN [Concomitant]
     Active Substance: METOCLOPRAMIDE HYDROCHLORIDE
     Dosage: ,,AS NECESSARY
     Dates: start: 20190926
  8. ARCOXIA [Concomitant]
     Active Substance: ETORICOXIB
     Dosage: 90,MG,AS NECESSARY
     Dates: start: 20190926
  9. PROGYNOVA                          /00045402/ [Concomitant]
     Active Substance: ESTRADIOL VALERATE
     Dosage: 1,MG,DAILY
     Dates: start: 20190926
  10. SOMAC [Concomitant]
     Active Substance: PANTOPRAZOLE SODIUM
     Dosage: 40,MG,DAILY
     Dates: start: 20190926
  11. HISTEC [Concomitant]
     Active Substance: CETIRIZINE HYDROCHLORIDE
     Dosage: 10,MG,AS NECESSARY
     Dates: start: 20190926
  12. LOSATRIX [Concomitant]
     Active Substance: LOSARTAN POTASSIUM
     Dosage: 50,MG,DAILY
     Dates: start: 20190926
  13. CAPECITABINE ORION [Concomitant]
     Dosage: 3000,MG,DAILY
     Dates: start: 20191002
  14. TETRALYSAL                         /00052901/ [Concomitant]
     Active Substance: LYMECYCLINE
     Dosage: 600,MG,DAILY
     Dates: start: 20190926
  15. ROSAZOL [Concomitant]
     Dosage: 2,DF,DAILY
     Dates: start: 20190926
  16. HYDROCORTISON                      /00028601/ [Concomitant]
     Active Substance: HYDROCORTISONE
     Dosage: ,,AS NECESSARY
     Dates: start: 20190926
  17. TEMESTA                            /00273201/ [Concomitant]
     Active Substance: LORAZEPAM
     Dosage: ,,AS NECESSARY
     Dates: start: 20190926
  18. LOPEX [Concomitant]
     Dosage: ,,AS NECESSARY
     Dates: start: 20190926
  19. DEXAMETASON                        /00016001/ [Concomitant]
     Active Substance: DEXAMETHASONE
     Dosage: ,,AS NECESSARY
     Dates: start: 20190926
  20. LITALGIN                           /06411801/ [Concomitant]
     Dosage: ,,AS NECESSARY
     Dates: start: 20190926
  21. LIBRAX [Concomitant]
     Active Substance: CHLORDIAZEPOXIDE HYDROCHLORIDE\CLIDINIUM BROMIDE
     Dosage: 1,DF,AS NECESSARY
     Dates: start: 20190926
  22. TENOX                              /00393701/ [Concomitant]
     Active Substance: TEMAZEPAM
     Dosage: 10,MG,AS NECESSARY
     Dates: start: 20190926
  23. AMLODIPIN ORION                    /00972402/ [Concomitant]
     Dosage: 10,MG,DAILY
     Dates: start: 20190926
  24. IBUXIN [Concomitant]
     Active Substance: IBUPROFEN
     Dosage: ,,AS NECESSARY
     Dates: start: 20190926
  25. FENTANYL TRANSDERMAL SYSTEM [Concomitant]
     Active Substance: FENTANYL
     Dosage: UNK
     Dates: start: 20190926

REACTIONS (2)
  - Dyspnoea [Recovered/Resolved]
  - Dysarthria [Recovered/Resolved]

NARRATIVE: CASE EVENT DATE: 20191002
